FAERS Safety Report 8546312-1 (Version None)
Quarter: 2012Q3

REPORT INFORMATION
  Report Type: 
  Country: None (occurrence: None)
  Receive Date: 20120727
  Receipt Date: 20111214
  Transmission Date: 20120928
  Serious: No
  Sender: FDA-Public Use
  Company Number: US-ASTRAZENECA-2011SE75650

PATIENT
  Sex: Male

DRUGS (4)
  1. CLONIPINE [Concomitant]
     Indication: SLEEP DISORDER
  2. SEROQUEL XR [Suspect]
     Route: 048
     Dates: start: 20110101
  3. SEROQUEL XR [Suspect]
     Indication: SLEEP DISORDER
     Route: 048
     Dates: start: 20100101
  4. AMBIEN [Concomitant]
     Indication: SLEEP DISORDER

REACTIONS (5)
  - SLEEP DISORDER [None]
  - OFF LABEL USE [None]
  - FATIGUE [None]
  - DRUG INEFFECTIVE FOR UNAPPROVED INDICATION [None]
  - INSOMNIA [None]
